FAERS Safety Report 9686531 (Version 1)
Quarter: 2013Q4

REPORT INFORMATION
  Report Type: Spontaneous
  Country: NO (occurrence: None)
  Receive Date: 20131108
  Receipt Date: 20131108
  Transmission Date: 20140711
  Serious: Yes (Death, Other)
  Sender: FDA-Public Use
  Company Number: AUR-APL-2013-09405

PATIENT
  Age: 87 Year
  Sex: Female

DRUGS (13)
  1. METFORMIN [Suspect]
     Route: 048
     Dates: start: 20110405
  2. LOSARTAN [Suspect]
  3. DIURAL [Suspect]
  4. IMOVANE (ZOPICLONE) [Concomitant]
  5. BETOLVEX (CYANOCOBALAMIN) [Concomitant]
  6. PREDNISOLON (PREDNISOLONE) [Concomitant]
  7. PARACET (PARACETAMOL) [Concomitant]
  8. TRIMETOPRIM (TRIMETHOPRIM) [Concomitant]
  9. SOMAC (PANTOPRAZOLE SODIUM SESQUIHYDRATE) [Concomitant]
  10. MAREVAN (WARFARIN SODIUM) [Concomitant]
  11. DIGITOXIN (DIGITOXIN) [Concomitant]
  12. VESICARE (SOLIFENACIN SUCCINATE) [Concomitant]
  13. SELO-ZOK (METOPROLOL SUCCINATE) [Concomitant]

REACTIONS (5)
  - Blood lactic acid increased [None]
  - Metabolic acidosis [None]
  - General physical health deterioration [None]
  - Hypophagia [None]
  - Hyperkalaemia [None]
